FAERS Safety Report 4440669-9 (Version None)
Quarter: 2004Q3

REPORT INFORMATION
  Report Type: 
  Country: None (occurrence: None)
  Receive Date: 20040903
  Receipt Date: 20040809
  Transmission Date: 20050211
  Serious: Yes (Hospitalization)
  Sender: FDA-Public Use
  Company Number: 601460

PATIENT
  Age: 12 Month
  Sex: Male
  Weight: 9.4 kg

DRUGS (5)
  1. GAMMAGARD S/D [Suspect]
     Indication: KAWASAKI'S DISEASE
     Dosage: 1.7 GM/KG; PRN; INTRAVENOUS
     Route: 042
     Dates: start: 20040727, end: 20040728
  2. TEGELINE [Concomitant]
  3. METHYLPREDNISOLONE [Concomitant]
  4. POLARAMINE [Concomitant]
  5. ASPIRIN [Concomitant]

REACTIONS (4)
  - OEDEMA PERIPHERAL [None]
  - PYREXIA [None]
  - SKIN DISCOLOURATION [None]
  - URTICARIA [None]
